FAERS Safety Report 8079879-0 (Version None)
Quarter: 2012Q1

REPORT INFORMATION
  Report Type: 
  Country: None (occurrence: None)
  Receive Date: 20120128
  Receipt Date: 20110821
  Transmission Date: 20120608
  Serious: No
  Sender: FDA-Public Use
  Company Number: US-ABBOTT-11P-163-0841051-00

PATIENT
  Sex: Female
  Weight: 57.658 kg

DRUGS (1)
  1. HUMIRA [Suspect]
     Indication: CROHN'S DISEASE
     Dosage: BEGAN W/ LOADING DOSE- THEN Q OTHER WEEK
     Route: 058
     Dates: start: 20110301, end: 20110701

REACTIONS (4)
  - STAPHYLOCOCCAL INFECTION [None]
  - PSORIASIS [None]
  - RASH PUSTULAR [None]
  - ALOPECIA [None]
